FAERS Safety Report 10538593 (Version 2)
Quarter: 2015Q1

REPORT INFORMATION
  Report Type: Spontaneous
  Country: US (occurrence: US)
  Receive Date: 20141023
  Receipt Date: 20150103
  Transmission Date: 20150720
  Serious: Yes (Other)
  Sender: FDA-Public Use
  Company Number: US-BRISTOL-MYERS SQUIBB COMPANY-21496245

PATIENT
  Sex: Female
  Weight: 103 kg

DRUGS (1)
  1. BYETTA [Suspect]
     Active Substance: EXENATIDE
     Indication: TYPE 2 DIABETES MELLITUS
     Dosage: 10 ?G, BID
     Route: 058
     Dates: start: 2011, end: 201410

REACTIONS (7)
  - Blood glucose decreased [Unknown]
  - Gallbladder operation [Unknown]
  - Knee operation [Unknown]
  - Vomiting [Unknown]
  - Sneezing [Unknown]
  - Spinal fusion surgery [Unknown]
  - Renal disorder [Unknown]
